FAERS Safety Report 19360462 (Version 1)
Quarter: 2021Q2

REPORT INFORMATION
  Report Type: Report from Study
  Country: None (occurrence: US)
  Receive Date: 20210602
  Receipt Date: 20210602
  Transmission Date: 20210717
  Serious: Yes (Death)
  Sender: FDA-Public Use
  Company Number: US-MDD US OPERATIONS-USW202006-001293

PATIENT
  Age: 68 Year
  Sex: Male

DRUGS (23)
  1. ROSUVASTATIN. [Concomitant]
     Active Substance: ROSUVASTATIN
     Dosage: NOT PROVIDED
  2. LORSARTAN [Concomitant]
     Active Substance: LOSARTAN
     Dosage: NOT PROVIDED
  3. HUMALOG [Concomitant]
     Active Substance: INSULIN LISPRO
     Dosage: NOT PROVIDED
  4. ARICEPT [Concomitant]
     Active Substance: DONEPEZIL HYDROCHLORIDE
     Dosage: NOT PROVIDED
  5. APOKYN [Suspect]
     Active Substance: APOMORPHINE HYDROCHLORIDE
     Route: 058
  6. LYRICA [Concomitant]
     Active Substance: PREGABALIN
     Dosage: NOT PROVIDED
  7. APOKYN [Suspect]
     Active Substance: APOMORPHINE HYDROCHLORIDE
  8. SINEMET [Concomitant]
     Active Substance: CARBIDOPA\LEVODOPA
     Dosage: NOT PROVIDED
  9. FINASTERIDE. [Concomitant]
     Active Substance: FINASTERIDE
     Dosage: NOT PROVIDED
  10. APOKYN [Suspect]
     Active Substance: APOMORPHINE HYDROCHLORIDE
     Indication: PARKINSON^S DISEASE
     Route: 058
  11. APOKYN [Suspect]
     Active Substance: APOMORPHINE HYDROCHLORIDE
  12. APOKYN [Suspect]
     Active Substance: APOMORPHINE HYDROCHLORIDE
     Dosage: NOT PROVIDED
  13. NOVOLOG [Concomitant]
     Active Substance: INSULIN ASPART
     Dosage: NOT PROVIDED
  14. APOKYN [Suspect]
     Active Substance: APOMORPHINE HYDROCHLORIDE
     Indication: FREEZING PHENOMENON
     Dosage: NOT PROVIDED
     Route: 058
     Dates: start: 20200618
  15. APOKYN [Suspect]
     Active Substance: APOMORPHINE HYDROCHLORIDE
     Route: 058
  16. APOKYN [Suspect]
     Active Substance: APOMORPHINE HYDROCHLORIDE
     Route: 058
     Dates: start: 20200618
  17. APOKYN [Suspect]
     Active Substance: APOMORPHINE HYDROCHLORIDE
  18. PEPCID [Concomitant]
     Active Substance: FAMOTIDINE
     Dosage: NOT PROVIDED
  19. LEVEMIR [Concomitant]
     Active Substance: INSULIN DETEMIR
     Dosage: NOT PROVIDED
  20. INDOMETHACIN. [Concomitant]
     Active Substance: INDOMETHACIN
     Dosage: NOT PROVIDED
  21. APOKYN [Suspect]
     Active Substance: APOMORPHINE HYDROCHLORIDE
     Route: 058
     Dates: start: 20201023
  22. DULOXETINE. [Suspect]
     Active Substance: DULOXETINE
     Indication: PRODUCT USED FOR UNKNOWN INDICATION
     Dosage: NOT PROVIDED
  23. METOPROLOL. [Concomitant]
     Active Substance: METOPROLOL
     Dosage: NOT PROVIDED

REACTIONS (6)
  - Rhinorrhoea [Recovered/Resolved]
  - Vomiting [Recovered/Resolved]
  - Nausea [Not Recovered/Not Resolved]
  - Vomiting [Recovered/Resolved]
  - Vomiting [Recovered/Resolved]
  - Cough [Recovered/Resolved]

NARRATIVE: CASE EVENT DATE: 2020
